FAERS Safety Report 21925235 (Version 1)
Quarter: 2023Q1

REPORT INFORMATION
  Report Type: Spontaneous
  Country: US (occurrence: US)
  Receive Date: 20230130
  Receipt Date: 20230130
  Transmission Date: 20230418
  Serious: Yes (Hospitalization)
  Sender: FDA-Public Use
  Company Number: US-STRIDES ARCOLAB LIMITED-2022SP002020

PATIENT
  Age: 19 Year
  Sex: Female

DRUGS (4)
  1. CHOLECALCIFEROL [Suspect]
     Active Substance: CHOLECALCIFEROL
     Indication: Pseudohypoparathyroidism
     Dosage: UNK
     Route: 048
  2. CALCITRIOL [Suspect]
     Active Substance: CALCITRIOL
     Indication: Pseudohypoparathyroidism
     Dosage: UNK
     Route: 048
  3. CALCIUM GLUCONATE [Suspect]
     Active Substance: CALCIUM GLUCONATE
     Indication: Pseudohypoparathyroidism
     Dosage: UNK
     Route: 042
  4. CALCIUM CARBONATE [Suspect]
     Active Substance: CALCIUM CARBONATE
     Indication: Pseudohypoparathyroidism
     Dosage: UNK
     Route: 048

REACTIONS (2)
  - Drug ineffective [Unknown]
  - Off label use [Unknown]
